FAERS Safety Report 9351999 (Version 1)
Quarter: 2013Q2

REPORT INFORMATION
  Report Type: Spontaneous
  Country: BR (occurrence: BR)
  Receive Date: 20130617
  Receipt Date: 20130617
  Transmission Date: 20140414
  Serious: Yes (Hospitalization)
  Sender: FDA-Public Use
  Company Number: BR-ABBOTT-13P-020-1103059-00

PATIENT
  Age: 58 Year
  Sex: Female
  Weight: 52 kg

DRUGS (5)
  1. HUMIRA [Suspect]
     Indication: RHEUMATOID ARTHRITIS
  2. MABTHERA [Suspect]
     Indication: RHEUMATOID ARTHRITIS
     Dosage: DAY 0: 2 DOSES; DAY 15: 2 DOSES
     Dates: start: 201204, end: 201204
  3. INTERFERON [Suspect]
     Indication: HEPATITIS C
  4. PREDNISONE [Concomitant]
     Indication: RHEUMATOID ARTHRITIS
  5. HYDROXYCHLOROQUINE [Concomitant]
     Indication: RHEUMATOID ARTHRITIS

REACTIONS (10)
  - Decreased immune responsiveness [Recovered/Resolved]
  - B-lymphocyte count decreased [Not Recovered/Not Resolved]
  - Urinary tract infection [Recovered/Resolved]
  - Opportunistic infection [Recovered/Resolved]
  - Nail infection [Recovered/Resolved]
  - Drug ineffective [Unknown]
  - Hepatitis C [Unknown]
  - Lymphadenopathy [Unknown]
  - Hepatomegaly [Recovered/Resolved]
  - Mediastinal mass [Recovered/Resolved]
